FAERS Safety Report 24902850 (Version 1)
Quarter: 2025Q1

REPORT INFORMATION
  Report Type: Report from Study
  Country: PK (occurrence: PK)
  Receive Date: 20250130
  Receipt Date: 20250130
  Transmission Date: 20250409
  Serious: Yes (Death)
  Sender: ROCHE
  Company Number: PK-ROCHE-10000194205

PATIENT
  Age: 74 Year
  Sex: Male

DRUGS (5)
  1. AVASTIN [Suspect]
     Active Substance: BEVACIZUMAB
     Indication: Hepatocellular carcinoma
     Route: 040
     Dates: start: 20240908
  2. AVASTIN [Suspect]
     Active Substance: BEVACIZUMAB
     Route: 040
  3. AVASTIN [Suspect]
     Active Substance: BEVACIZUMAB
     Route: 040
  4. TECENTRIQ [Suspect]
     Active Substance: ATEZOLIZUMAB
     Indication: Hepatocellular carcinoma
     Route: 040
     Dates: start: 20240908
  5. TECENTRIQ [Suspect]
     Active Substance: ATEZOLIZUMAB
     Route: 040

REACTIONS (1)
  - Renal failure [Fatal]
